FAERS Safety Report 26090726 (Version 1)
Quarter: 2025Q4

REPORT INFORMATION
  Report Type: Spontaneous
  Country: US (occurrence: US)
  Receive Date: 20251126
  Receipt Date: 20251126
  Transmission Date: 20260118
  Serious: Yes (Other)
  Sender: AUROBINDO
  Company Number: US-MLMSERVICE-20251110-PI705789-00271-1

PATIENT
  Age: 56 Year
  Sex: Male

DRUGS (1)
  1. PREDNISONE [Suspect]
     Active Substance: PREDNISONE
     Indication: Thyroiditis subacute
     Dosage: SUBSEQUENT ATTEMPTS TO WEAN STEROIDS, CHRONIC
     Route: 065

REACTIONS (2)
  - Cushing^s syndrome [Unknown]
  - Hyperglycaemia [Unknown]
